FAERS Safety Report 4604075-6 (Version None)
Quarter: 2005Q1

REPORT INFORMATION
  Report Type: 
  Country: None (occurrence: None)
  Receive Date: 20050309
  Receipt Date: 20050309
  Transmission Date: 20050727
  Serious: Yes (Other)
  Sender: FDA-Public Use
  Company Number: None

PATIENT
  Age: 70 Year
  Sex: Female
  Weight: 64.8644 kg

DRUGS (2)
  1. INDERAL LA [Suspect]
     Indication: MIGRAINE
     Dosage: 80MG  QD
     Dates: start: 19930101
  2. FIORICET [Suspect]
     Indication: MIGRAINE
     Dosage: 1 PRN  2-3 /DAILY
     Dates: start: 19930101

REACTIONS (2)
  - DRUG INEFFECTIVE [None]
  - PHARMACEUTICAL PRODUCT COMPLAINT [None]
